FAERS Safety Report 18600837 (Version 2)
Quarter: 2022Q1

REPORT INFORMATION
  Report Type: Spontaneous
  Country: US (occurrence: US)
  Receive Date: 20201210
  Receipt Date: 20220110
  Transmission Date: 20220423
  Serious: Yes (Hospitalization, Other)
  Sender: FDA-Public Use
  Company Number: US-PFIZER INC-2020486793

PATIENT
  Age: 74 Year
  Sex: Male

DRUGS (1)
  1. TAFAMIDIS [Suspect]
     Active Substance: TAFAMIDIS
     Dosage: 61 MG
     Dates: start: 2020

REACTIONS (9)
  - Illness [Unknown]
  - Pyrexia [Unknown]
  - Endocarditis [Unknown]
  - Chest pain [Unknown]
  - Exercise tolerance decreased [Unknown]
  - Asthenia [Unknown]
  - Diarrhoea [Recovered/Resolved]
  - Peripheral swelling [Unknown]
  - Productive cough [Unknown]

NARRATIVE: CASE EVENT DATE: 20200101
